FAERS Safety Report 5269466-1 (Version None)
Quarter: 2007Q1

REPORT INFORMATION
  Report Type: 
  Country: None (occurrence: None)
  Receive Date: 20070320
  Receipt Date: 20070314
  Transmission Date: 20070707
  Serious: Yes (Other)
  Sender: FDA-Public Use
  Company Number: FRWYE024214MAR07

PATIENT
  Sex: Female

DRUGS (1)
  1. ADVIL [Suspect]
     Indication: TOOTH ABSCESS
     Dosage: 400 MG TOTAL DAILY
     Route: 064
     Dates: start: 20050706

REACTIONS (2)
  - DRUG EXPOSURE DURING PREGNANCY [None]
  - INTRA-UTERINE DEATH [None]
